FAERS Safety Report 17360634 (Version 1)
Quarter: 2020Q1

REPORT INFORMATION
  Report Type: Spontaneous
  Country: US (occurrence: US)
  Receive Date: 20200117
  Receipt Date: 20200117
  Transmission Date: 20200409
  Serious: Yes (Hospitalization)
  Sender: FDA-Public Use
  Company Number: None

PATIENT
  Age: 52 Year
  Sex: Female

DRUGS (1)
  1. HUMIRA [Suspect]
     Active Substance: ADALIMUMAB
     Indication: CROHN^S DISEASE
     Dosage: ?          OTHER FREQUENCY:DAY 1, DAY 15;?
     Route: 058
     Dates: start: 20191225

REACTIONS (2)
  - Haemorrhage [None]
  - Gastrointestinal stoma complication [None]

NARRATIVE: CASE EVENT DATE: 20200105
